FAERS Safety Report 24998231 (Version 2)
Quarter: 2025Q2

REPORT INFORMATION
  Report Type: Spontaneous
  Country: US (occurrence: US)
  Receive Date: 20250222
  Receipt Date: 20250513
  Transmission Date: 20250716
  Serious: No
  Sender: SANOFI AVENTIS
  Company Number: US-SA-2025SA044212

PATIENT
  Sex: Male

DRUGS (4)
  1. ALPROLIX [Suspect]
     Active Substance: EFTRENONACOG ALFA
     Indication: Factor IX deficiency
     Dosage: 7500 U, Q10D
     Route: 042
     Dates: start: 201706
  2. ALPROLIX [Suspect]
     Active Substance: EFTRENONACOG ALFA
     Indication: Factor IX deficiency
     Dosage: 7500 U, Q10D
     Route: 042
     Dates: start: 201706
  3. ALPROLIX [Suspect]
     Active Substance: EFTRENONACOG ALFA
     Dosage: 7300 U, Q10D
     Route: 042
     Dates: start: 201706
  4. ALPROLIX [Suspect]
     Active Substance: EFTRENONACOG ALFA
     Dosage: 7300 U, Q10D
     Route: 042
     Dates: start: 201706

REACTIONS (3)
  - Poor venous access [Unknown]
  - Injection site pain [Unknown]
  - Drug ineffective [Unknown]
